FAERS Safety Report 16438767 (Version 1)
Quarter: 2019Q2

REPORT INFORMATION
  Report Type: Spontaneous
  Country: DE (occurrence: DE)
  Receive Date: 20190617
  Receipt Date: 20190617
  Transmission Date: 20190711
  Serious: No
  Sender: FDA-Public Use
  Company Number: DE-LUPIN PHARMACEUTICALS INC.-2019-02566

PATIENT
  Sex: Male

DRUGS (10)
  1. TOPIRAMATE. [Suspect]
     Active Substance: TOPIRAMATE
     Indication: POST-ANOXIC MYOCLONUS
     Dosage: UNK
     Route: 065
  2. CLONAZEPAM. [Concomitant]
     Active Substance: CLONAZEPAM
     Dosage: 1.5 MILLIGRAM, QD
     Route: 065
  3. LEVETIRACETAM. [Concomitant]
     Active Substance: LEVETIRACETAM
     Indication: SEIZURE
     Dosage: 1500 MILLIGRAM, QD
     Route: 065
  4. BRIVARACETAM [Concomitant]
     Active Substance: BRIVARACETAM
     Indication: SEIZURE
     Dosage: 150 MILLIGRAM, QD
     Route: 065
  5. PREGABALIN. [Concomitant]
     Active Substance: PREGABALIN
     Indication: SEIZURE
     Dosage: UNK
     Route: 065
  6. ESLICARBAZEPINE [Concomitant]
     Active Substance: ESLICARBAZEPINE
     Indication: SEIZURE
     Dosage: UNK
     Route: 065
  7. LAMOTRIGINE. [Suspect]
     Active Substance: LAMOTRIGINE
     Indication: SEIZURE
     Dosage: UNK
     Route: 065
  8. GABAPENTIN. [Suspect]
     Active Substance: GABAPENTIN
     Indication: POST-ANOXIC MYOCLONUS
     Dosage: UNK
     Route: 065
  9. ZONISAMIDE. [Suspect]
     Active Substance: ZONISAMIDE
     Indication: SEIZURE
     Dosage: UNK
     Route: 065
  10. CLONAZEPAM. [Concomitant]
     Active Substance: CLONAZEPAM
     Indication: POST-ANOXIC MYOCLONUS
     Dosage: DOSE ESCALATION
     Route: 065

REACTIONS (5)
  - Vomiting [Unknown]
  - Rash [Unknown]
  - Nausea [Unknown]
  - Salivary hypersecretion [Unknown]
  - Speech disorder [Unknown]
